FAERS Safety Report 9440462 (Version 1)
Quarter: 2013Q3

REPORT INFORMATION
  Report Type: Spontaneous
  Country: IE (occurrence: IE)
  Receive Date: 20130805
  Receipt Date: 20130805
  Transmission Date: 20140515
  Serious: Yes (Hospitalization, Other)
  Sender: FDA-Public Use
  Company Number: PHHY2013IE082250

PATIENT
  Age: 82 Year
  Sex: Female

DRUGS (1)
  1. METFORMIN [Suspect]
     Indication: TYPE 2 DIABETES MELLITUS

REACTIONS (10)
  - Anaemia megaloblastic [Unknown]
  - Pallor [Unknown]
  - Haemoglobin decreased [Unknown]
  - Blood folate decreased [Unknown]
  - Blood bilirubin increased [Unknown]
  - Blood lactate dehydrogenase increased [Unknown]
  - Vitamin B12 deficiency [Unknown]
  - Pancytopenia [Unknown]
  - Gait disturbance [Unknown]
  - Confusional state [Unknown]
